FAERS Safety Report 9098991 (Version 2)
Quarter: 2013Q2

REPORT INFORMATION
  Report Type: Spontaneous
  Country: ES (occurrence: ES)
  Receive Date: 20130214
  Receipt Date: 20130424
  Transmission Date: 20140414
  Serious: Yes (Hospitalization)
  Sender: FDA-Public Use
  Company Number: ES-ELI_LILLY_AND_COMPANY-ES201301007453

PATIENT
  Sex: Female
  Weight: 63 kg

DRUGS (5)
  1. FORSTEO [Suspect]
     Indication: OSTEOPOROSIS
     Dosage: 20 UG, QD
     Route: 058
     Dates: start: 20110523, end: 20130127
  2. DAFLON [Concomitant]
     Indication: CARDIOVASCULAR DISORDER
     Dosage: 500 MG, BID
     Route: 048
     Dates: start: 2010
  3. SECALIP [Concomitant]
     Indication: HYPERCHOLESTEROLAEMIA
     Dosage: 145 MG, QD
     Route: 048
     Dates: start: 2008
  4. ORFIDAL [Concomitant]
     Indication: SLEEP DISORDER
     Dosage: 1 MG, EACH EVENING
     Route: 048
     Dates: start: 2008
  5. PRANDIN [Concomitant]
     Indication: DIABETES MELLITUS
     Dosage: 2 MG, EVERY 8 HRS
     Route: 048
     Dates: start: 2008

REACTIONS (1)
  - Postoperative wound infection [Recovered/Resolved]
